FAERS Safety Report 9097841 (Version 1)
Quarter: 2013Q1

REPORT INFORMATION
  Report Type: Spontaneous
  Country: US (occurrence: US)
  Receive Date: 20130212
  Receipt Date: 20130212
  Transmission Date: 20140127
  Serious: No
  Sender: FDA-Public Use
  Company Number: US-TEVA-357163USA

PATIENT
  Sex: Female

DRUGS (1)
  1. SALBUTAMOL [Suspect]
     Route: 055

REACTIONS (2)
  - Back pain [Unknown]
  - Chest pain [Unknown]
